FAERS Safety Report 6522572-3 (Version None)
Quarter: 2009Q4

REPORT INFORMATION
  Report Type: 
  Country: None (occurrence: None)
  Receive Date: 20091224
  Receipt Date: 20091213
  Transmission Date: 20100525
  Serious: Yes (Hospitalization)
  Sender: FDA-Public Use
  Company Number: 2009EN000310

PATIENT
  Age: 17 Year
  Sex: Male
  Weight: 66.4 kg

DRUGS (11)
  1. ONCASPAR [Suspect]
     Indication: ACUTE LYMPHOCYTIC LEUKAEMIA
     Dosage: 2500 IU/M2; IV, 4500 IU, X1, IV;
     Route: 042
     Dates: start: 20091118, end: 20091118
  2. ONCASPAR [Suspect]
     Indication: ACUTE LYMPHOCYTIC LEUKAEMIA
     Dosage: 2500 IU/M2; IV, 4500 IU, X1, IV;
     Route: 042
     Dates: start: 20090726
  3. METHOTREXATE [Suspect]
     Indication: ACUTE LYMPHOCYTIC LEUKAEMIA
     Dosage: 15 MG, INTH
     Route: 025
     Dates: end: 20091117
  4. METHOTREXATE [Suspect]
     Indication: ACUTE LYMPHOCYTIC LEUKAEMIA
     Dosage: 810 MG, IV
     Route: 042
     Dates: end: 20091207
  5. VINCRISTINE [Suspect]
     Indication: ACUTE LYMPHOCYTIC LEUKAEMIA
     Dosage: 6 MG, IV
     Route: 042
     Dates: start: 20091117, end: 20091207
  6. BACTRIM [Suspect]
     Indication: DRUG USE FOR UNKNOWN INDICATION
  7. CYTARABINE [Concomitant]
  8. CYCLOPHOSPHAMIDE [Concomitant]
  9. MERCAPTOPURINE [Concomitant]
  10. DAUNORUBICIN HCL [Concomitant]
  11. PREDNISONE [Concomitant]

REACTIONS (11)
  - ABDOMINAL PAIN LOWER [None]
  - HEADACHE [None]
  - HYPERGLYCAEMIA [None]
  - HYPERURICAEMIA [None]
  - HYPOALBUMINAEMIA [None]
  - HYPOCALCAEMIA [None]
  - OROPHARYNGEAL PAIN [None]
  - PHOTOSENSITIVITY REACTION [None]
  - PROTEINURIA [None]
  - PYREXIA [None]
  - RENAL FAILURE [None]
